FAERS Safety Report 6831100-4 (Version None)
Quarter: 2010Q3

REPORT INFORMATION
  Report Type: 
  Country: None (occurrence: None)
  Receive Date: 20100712
  Receipt Date: 20100614
  Transmission Date: 20110219
  Serious: Yes (Disabling)
  Sender: FDA-Public Use
  Company Number: US-BAYER-201016969BCC

PATIENT
  Age: 26 Year
  Sex: Female
  Weight: 100 kg

DRUGS (9)
  1. ALEVE (CAPLET) [Suspect]
     Indication: PAIN
     Route: 048
  2. ALEVE (CAPLET) [Suspect]
     Route: 048
  3. ALEVE [Suspect]
     Indication: PAIN
     Route: 048
  4. ASPIRIN [Suspect]
     Indication: PNEUMONIA
     Route: 048
     Dates: start: 19680601
  5. ZESTRIL [Concomitant]
     Route: 065
  6. PAXIL [Concomitant]
     Route: 065
  7. CODEINE SULFATE [Concomitant]
     Indication: PNEUMONIA
     Route: 065
     Dates: start: 19680601
  8. TETRACYCLINE [Concomitant]
     Indication: PNEUMONIA
     Route: 065
     Dates: start: 19680601
  9. SULFUR [Concomitant]
     Indication: PNEUMONIA
     Route: 065
     Dates: start: 19680601

REACTIONS (6)
  - ABDOMINAL DISCOMFORT [None]
  - DRUG INEFFECTIVE [None]
  - GASTRIC DISORDER [None]
  - PAIN [None]
  - VOMITING [None]
  - WEIGHT DECREASED [None]
